FAERS Safety Report 7230586-3 (Version None)
Quarter: 2011Q1

REPORT INFORMATION
  Report Type: 
  Country: None (occurrence: None)
  Receive Date: 20110118
  Receipt Date: 20110109
  Transmission Date: 20110831
  Serious: Yes (Other)
  Sender: FDA-Public Use
  Company Number: PT-BRISTOL-MYERS SQUIBB COMPANY-15472590

PATIENT
  Age: 72 Year
  Sex: Male

DRUGS (1)
  1. MITOMYCIN [Suspect]
     Indication: BLADDER CANCER
     Dosage: 40MG WEEKLY FOR 6 WEEKS FOLLOWED BY 6 MONTHLY ADMINISTRATIONS
     Route: 043

REACTIONS (1)
  - SCLERODERMA [None]
